FAERS Safety Report 8368390-5 (Version None)
Quarter: 2012Q2

REPORT INFORMATION
  Report Type: 
  Country: None (occurrence: None)
  Receive Date: 20120517
  Receipt Date: 20120507
  Transmission Date: 20120825
  Serious: Yes (Hospitalization)
  Sender: FDA-Public Use
  Company Number: DE-ELI_LILLY_AND_COMPANY-DE201205001944

PATIENT
  Sex: Male

DRUGS (1)
  1. FORTEO [Suspect]
     Indication: OSTEOPOROSIS
     Dosage: UNK, QD
     Route: 058
     Dates: start: 20110505, end: 20120409

REACTIONS (5)
  - CORONARY ARTERY OCCLUSION [None]
  - LUNG DISORDER [None]
  - ABDOMINAL PAIN UPPER [None]
  - HYPERTENSION [None]
  - HYPERHIDROSIS [None]
